FAERS Safety Report 7367217-8 (Version None)
Quarter: 2011Q1

REPORT INFORMATION
  Report Type: 
  Country: None (occurrence: None)
  Receive Date: 20110322
  Receipt Date: 20110315
  Transmission Date: 20110831
  Serious: Yes (Hospitalization)
  Sender: FDA-Public Use
  Company Number: DE-PFIZER INC-2011043849

PATIENT
  Age: 89 Year
  Sex: Male
  Weight: 73 kg

DRUGS (13)
  1. TORASEMIDE [Concomitant]
     Dosage: UNK
     Route: 048
     Dates: start: 20100522
  2. SELEGILINE [Concomitant]
     Dosage: UNK
     Route: 048
     Dates: start: 20050331
  3. MEMANTINE [Concomitant]
     Dosage: UNK
     Route: 048
     Dates: start: 20070101
  4. METOPROLOL [Concomitant]
     Dosage: UNK
     Route: 048
     Dates: start: 20050304
  5. IRBESARTAN [Concomitant]
     Dosage: UNK
     Route: 048
     Dates: start: 20101120
  6. EPLERENONE [Suspect]
     Indication: CARDIAC FAILURE
     Dosage: 25 MG, 1X/DAY
     Route: 048
     Dates: start: 20101103, end: 20110103
  7. SIMVASTATIN [Concomitant]
     Dosage: UNK
     Route: 048
     Dates: start: 20081002
  8. PREGABALIN [Concomitant]
     Dosage: UNK
     Route: 048
     Dates: start: 20100515
  9. PIRACETAM [Concomitant]
     Dosage: UNK
     Route: 048
     Dates: start: 20101209
  10. DIGITOXIN [Concomitant]
     Dosage: UNK
     Route: 048
     Dates: start: 20101103
  11. NIMODIPINE [Concomitant]
     Dosage: UNK
     Route: 048
     Dates: start: 20100901
  12. PANTOPRAZOLE SODIUM [Concomitant]
     Dosage: UNK
     Route: 048
     Dates: start: 20101209
  13. ASPIRIN [Concomitant]
     Dosage: UNK
     Route: 048
     Dates: start: 20050331

REACTIONS (1)
  - ANAEMIA MACROCYTIC [None]
